FAERS Safety Report 5195403-4 (Version None)
Quarter: 2006Q4

REPORT INFORMATION
  Report Type: 
  Country: None (occurrence: None)
  Receive Date: 20061229
  Receipt Date: 20061221
  Transmission Date: 20070319
  Serious: Yes (Other)
  Sender: FDA-Public Use
  Company Number: BR-PFIZER INC-2006155542

PATIENT
  Sex: Male

DRUGS (2)
  1. VIAGRA [Suspect]
  2. AMLODIPINE/ATENOLOL [Concomitant]

REACTIONS (3)
  - FIBROSIS [None]
  - MOUTH CYST [None]
  - TOOTH AVULSION [None]
